FAERS Safety Report 11457189 (Version 1)
Quarter: 2015Q3

REPORT INFORMATION
  Report Type: Spontaneous
  Country: US (occurrence: None)
  Receive Date: 20150903
  Receipt Date: 20150903
  Transmission Date: 20151125
  Serious: No
  Sender: FDA-Public Use
  Company Number: None

PATIENT
  Age: 42 Year
  Sex: Male

DRUGS (2)
  1. HUMALOG [Suspect]
     Active Substance: INSULIN LISPRO
     Indication: TYPE 1 DIABETES MELLITUS
     Dosage: CONTINUOUS
     Route: 058
  2. KETONAZOLE [Concomitant]

REACTIONS (2)
  - Injection site haemorrhage [None]
  - Injection site inflammation [None]

NARRATIVE: CASE EVENT DATE: 20150219
